FAERS Safety Report 21903223 (Version 1)
Quarter: 2023Q1

REPORT INFORMATION
  Report Type: Spontaneous
  Country: US (occurrence: US)
  Receive Date: 20230124
  Receipt Date: 20230124
  Transmission Date: 20230418
  Serious: No
  Sender: FDA-Public Use
  Company Number: US-TEVA-2023-US-2844720

PATIENT

DRUGS (1)
  1. CLONAZEPAM [Suspect]
     Active Substance: CLONAZEPAM
     Indication: Product used for unknown indication
     Dosage: STRENGTH: 1 MG
     Route: 065
     Dates: start: 202301

REACTIONS (6)
  - Feeling abnormal [Unknown]
  - Hyperhidrosis [Unknown]
  - Anxiety [Unknown]
  - Depression [Unknown]
  - Irritability [Unknown]
  - Product substitution issue [Unknown]

NARRATIVE: CASE EVENT DATE: 20230101
